FAERS Safety Report 5118423-4 (Version None)
Quarter: 2006Q3

REPORT INFORMATION
  Report Type: 
  Country: None (occurrence: None)
  Receive Date: 20060927
  Receipt Date: 20060911
  Transmission Date: 20061208
  Serious: Yes (Life-Threatening)
  Sender: FDA-Public Use
  Company Number: DSA_28709_2006

PATIENT
  Age: 57 Year
  Sex: Female

DRUGS (4)
  1. ORFIDAL [Suspect]
     Indication: COLITIS ULCERATIVE
     Dosage: 1 MG Q DAY PO
     Route: 048
     Dates: start: 20050625
  2. IMUREL [Suspect]
     Indication: COLITIS ULCERATIVE
     Dosage: 50 MG Q DAY PO
     Route: 048
     Dates: start: 20050628, end: 20051020
  3. ENTOCORT [Concomitant]
  4. URBASON             /00049601/ [Concomitant]

REACTIONS (1)
  - HEPATITIS [None]
